FAERS Safety Report 5378261-4 (Version None)
Quarter: 2007Q3

REPORT INFORMATION
  Report Type: 
  Country: None (occurrence: None)
  Receive Date: 20070702
  Receipt Date: 20070619
  Transmission Date: 20080115
  Serious: Yes (Hospitalization)
  Sender: FDA-Public Use
  Company Number: S07-USA-02655-01

PATIENT
  Age: 83 Year
  Sex: Female

DRUGS (7)
  1. NAMENDA [Suspect]
     Indication: DEMENTIA
     Dates: end: 20070605
  2. NAMENDA [Suspect]
     Indication: DEMENTIA ALZHEIMER'S TYPE
     Dates: end: 20070605
  3. CYMBALTA (DULOXETINE HCI) [Concomitant]
  4. ACTONEL [Concomitant]
  5. LIPITOR [Concomitant]
  6. ASPIRIN [Concomitant]
  7. GLYCOLAX [Concomitant]

REACTIONS (4)
  - ASTHENIA [None]
  - MUSCLE RIGIDITY [None]
  - SOMNOLENCE [None]
  - TREATMENT NONCOMPLIANCE [None]
